FAERS Safety Report 8032092-5 (Version None)
Quarter: 2012Q1

REPORT INFORMATION
  Report Type: 
  Country: None (occurrence: None)
  Receive Date: 20120109
  Receipt Date: 20111004
  Transmission Date: 20120608
  Serious: Yes (Other)
  Sender: FDA-Public Use
  Company Number: US-ASTRAZENECA-2012SE00801

PATIENT

DRUGS (2)
  1. DASATINIB [Suspect]
     Indication: GLIOMA
     Dosage: 65 MG/M2
  2. VANDETANIB [Suspect]
     Indication: GLIOMA
     Dosage: 85 MG/M2
     Route: 048

REACTIONS (2)
  - LIPASE INCREASED [None]
  - AMYLASE INCREASED [None]
